FAERS Safety Report 8255369 (Version 7)
Quarter: 2013Q2

REPORT INFORMATION
  Report Type: Spontaneous
  Country: GB (occurrence: GB)
  Receive Date: 20111118
  Receipt Date: 20130626
  Transmission Date: 20140414
  Serious: Yes (Other)
  Sender: FDA-Public Use
  Company Number: PHFR2011GB006398

PATIENT
  Age: 31 Year
  Sex: Male
  Weight: 107 kg

DRUGS (3)
  1. CLOZARIL [Suspect]
     Indication: SCHIZOPHRENIA
     Dosage: 450 MG,
     Route: 048
     Dates: start: 2009
  2. CLOZARIL [Suspect]
     Dosage: 450 MG,
     Dates: start: 20110228
  3. BISOPROLOL [Concomitant]
     Indication: TACHYCARDIA
     Dosage: 2.5 MG,
     Route: 048

REACTIONS (5)
  - Proctoparalysis [Recovering/Resolving]
  - Faeces hard [Unknown]
  - Colitis ulcerative [Recovering/Resolving]
  - Rectal haemorrhage [Recovered/Resolved]
  - Constipation [Recovered/Resolved]
